FAERS Safety Report 8006374-7 (Version None)
Quarter: 2011Q4

REPORT INFORMATION
  Report Type: 
  Country: None (occurrence: None)
  Receive Date: 20111226
  Receipt Date: 20111213
  Transmission Date: 20120403
  Serious: Yes (Hospitalization)
  Sender: FDA-Public Use
  Company Number: PHHY2011IT109051

PATIENT
  Sex: Female

DRUGS (4)
  1. INNEOV TRICO-MASSE [Concomitant]
  2. TRANEX [Concomitant]
     Indication: METRORRHAGIA
     Dosage: 1500 MG, UNK
     Route: 048
     Dates: start: 20111203, end: 20111205
  3. FOLIC ACID [Concomitant]
  4. METHERGINE [Suspect]
     Indication: METRORRHAGIA
     Dosage: 2 DF, UNK
     Route: 048
     Dates: start: 20111203, end: 20111205

REACTIONS (2)
  - BILIARY COLIC [None]
  - GALLBLADDER DISORDER [None]
